FAERS Safety Report 9412698 (Version 1)
Quarter: 2013Q3

REPORT INFORMATION
  Report Type: Report from Study
  Country: IT (occurrence: IT)
  Receive Date: 20130722
  Receipt Date: 20130722
  Transmission Date: 20140515
  Serious: Yes (Other)
  Sender: FDA-Public Use
  Company Number: IT-ROCHE-1134520

PATIENT
  Age: 60 Year
  Sex: Male

DRUGS (5)
  1. AVASTIN [Suspect]
     Indication: COLON CANCER
     Route: 042
     Dates: start: 20120821, end: 20120821
  2. AVASTIN [Suspect]
     Route: 042
     Dates: start: 20120821, end: 20120821
  3. IRINOTECAN [Concomitant]
     Route: 042
  4. FLUOROURACIL [Concomitant]
     Route: 042
  5. LEDERFOLIN [Concomitant]
     Route: 042

REACTIONS (3)
  - Eyelid infection [Recovering/Resolving]
  - Nausea [Recovering/Resolving]
  - Vomiting [Recovering/Resolving]
